FAERS Safety Report 12089099 (Version 1)
Quarter: 2016Q1

REPORT INFORMATION
  Report Type: Spontaneous
  Country: PT (occurrence: PT)
  Receive Date: 20160218
  Receipt Date: 20160218
  Transmission Date: 20160526
  Serious: Yes (Other)
  Sender: FDA-Public Use
  Company Number: PT-B. BRAUN MEDICAL INC.-1048048

PATIENT
  Age: 88 Year
  Sex: Female
  Weight: 50 kg

DRUGS (2)
  1. HEPARIN SODIUM AND DEXTROSE [Suspect]
     Active Substance: HEPARIN SODIUM
     Indication: PROPHYLAXIS
     Route: 040
  2. HEPARIN [Suspect]
     Active Substance: HEPARIN SODIUM
     Route: 041

REACTIONS (2)
  - Heparin-induced thrombocytopenia [None]
  - Anaemia [None]
